FAERS Safety Report 12490385 (Version 2)
Quarter: 2016Q3

REPORT INFORMATION
  Report Type: Spontaneous
  Country: US (occurrence: US)
  Receive Date: 20160622
  Receipt Date: 20160930
  Transmission Date: 20161109
  Serious: No
  Sender: FDA-Public Use
  Company Number: US-ASTRAZENECA-2016SE48433

PATIENT
  Age: 63 Year
  Sex: Male
  Weight: 93.9 kg

DRUGS (14)
  1. MELOXICAM. [Concomitant]
     Active Substance: MELOXICAM
  2. ROSUVASTATIN. [Concomitant]
     Active Substance: ROSUVASTATIN
  3. FINASTERIDE. [Concomitant]
     Active Substance: FINASTERIDE
  4. LORATIDINE [Concomitant]
     Active Substance: LORATADINE
  5. METFORMIN [Concomitant]
     Active Substance: METFORMIN HYDROCHLORIDE
  6. TAMSILLOSIN [Concomitant]
  7. BYDUREON [Suspect]
     Active Substance: EXENATIDE
     Indication: TYPE 2 DIABETES MELLITUS
     Route: 058
     Dates: start: 2015, end: 20160316
  8. ASPIRIN. [Concomitant]
     Active Substance: ASPIRIN
  9. FISH OIL [Concomitant]
     Active Substance: FISH OIL
  10. OMEPRAZOLE. [Concomitant]
     Active Substance: OMEPRAZOLE
  11. LISINOPRIL. [Suspect]
     Active Substance: LISINOPRIL
     Route: 048
  12. VITAMIN D3 [Concomitant]
     Active Substance: CHOLECALCIFEROL
     Dosage: 2000 UNITS DAILY
  13. VARDENAFIL [Concomitant]
     Active Substance: VARDENAFIL
     Dosage: 20.0MG AS REQUIRED
  14. GABAPENTIN. [Concomitant]
     Active Substance: GABAPENTIN

REACTIONS (6)
  - Skin mass [Recovered/Resolved]
  - Injection site mass [Unknown]
  - Injection site erythema [Unknown]
  - Drug hypersensitivity [Unknown]
  - Injection site pruritus [Unknown]
  - Cough [Unknown]

NARRATIVE: CASE EVENT DATE: 20160217
